FAERS Safety Report 10213101 (Version 1)
Quarter: 2014Q2

REPORT INFORMATION
  Report Type: Report from Study
  Country: US (occurrence: US)
  Receive Date: 20140603
  Receipt Date: 20140603
  Transmission Date: 20141212
  Serious: Yes (Other)
  Sender: FDA-Public Use
  Company Number: US-ROCHE-1411140

PATIENT
  Age: 82 Year
  Sex: Female

DRUGS (6)
  1. HERCEPTIN [Suspect]
     Indication: BREAST CANCER METASTATIC
     Dosage: FIRST LINE
     Route: 065
  2. HERCEPTIN [Suspect]
     Dosage: SECOND LINE
     Route: 065
  3. PERJETA [Suspect]
     Indication: BREAST CANCER METASTATIC
     Dosage: 1L
     Route: 065
  4. XELODA [Suspect]
     Indication: BREAST CANCER METASTATIC
     Dosage: DAILY, FIRST LINE
     Route: 065
  5. TAXOTERE [Concomitant]
  6. TAXOL [Concomitant]
     Dosage: ADJUVANT
     Route: 065

REACTIONS (1)
  - Cardiotoxicity [Unknown]
